FAERS Safety Report 12467319 (Version 1)
Quarter: 2016Q2

REPORT INFORMATION
  Report Type: Spontaneous
  Country: US (occurrence: None)
  Receive Date: 20160614
  Receipt Date: 20160614
  Transmission Date: 20160815
  Serious: No
  Sender: FDA-Public Use
  Company Number: None

PATIENT
  Age: 64 Year
  Sex: Female

DRUGS (5)
  1. NORVASE [Concomitant]
  2. OMEPRAZOL [Concomitant]
     Active Substance: OMEPRAZOLE
  3. THEO [Concomitant]
     Active Substance: THEOPHYLLINE ANHYDROUS
  4. ADVAIR HFA [Concomitant]
     Active Substance: FLUTICASONE PROPIONATE\SALMETEROL XINAFOATE
  5. ORENCIA [Suspect]
     Active Substance: ABATACEPT
     Indication: RHEUMATOID ARTHRITIS
     Route: 058
     Dates: start: 20150109

REACTIONS (2)
  - Drug dose omission [None]
  - Sinusitis [None]

NARRATIVE: CASE EVENT DATE: 201605
